FAERS Safety Report 20514158 (Version 5)
Quarter: 2022Q3

REPORT INFORMATION
  Report Type: Spontaneous
  Country: US (occurrence: US)
  Receive Date: 20220224
  Receipt Date: 20220707
  Transmission Date: 20221027
  Serious: Yes (Hospitalization)
  Sender: FDA-Public Use
  Company Number: US-MYOVANT SCIENCES IRELAND LIMITED-2022MYSCI0100321

PATIENT
  Age: 85 Year
  Sex: Male

DRUGS (6)
  1. ORGOVYX [Suspect]
     Active Substance: RELUGOLIX
     Indication: Prostate cancer
     Dosage: 360 MILLIGRAM, ONE TIME DOSE
     Route: 048
     Dates: start: 20211014, end: 20211014
  2. ORGOVYX [Suspect]
     Active Substance: RELUGOLIX
     Dosage: 120 MILLIGRAM, QD
     Route: 048
     Dates: start: 20211015
  3. ORGOVYX [Suspect]
     Active Substance: RELUGOLIX
     Dosage: UNK
  4. ORGOVYX [Suspect]
     Active Substance: RELUGOLIX
     Dosage: UNK
  5. ORGOVYX [Suspect]
     Active Substance: RELUGOLIX
     Dosage: UNK
  6. ACALABRUTINIB [Concomitant]
     Active Substance: ACALABRUTINIB
     Indication: Chronic lymphocytic leukaemia
     Dosage: 100 MILLIGRAM, BID
     Route: 065
     Dates: start: 20220121

REACTIONS (3)
  - Cardiac valve disease [Recovered/Resolved]
  - Platelet count decreased [Not Recovered/Not Resolved]
  - Contusion [Unknown]

NARRATIVE: CASE EVENT DATE: 20220209
